FAERS Safety Report 8450329-5 (Version None)
Quarter: 2012Q2

REPORT INFORMATION
  Report Type: 
  Country: None (occurrence: None)
  Receive Date: 20120620
  Receipt Date: 20120607
  Transmission Date: 20120825
  Serious: No
  Sender: FDA-Public Use
  Company Number: US-ASTRAZENECA-2009SE05872

PATIENT
  Age: 61 Year
  Sex: Female

DRUGS (7)
  1. NEXIUM [Suspect]
     Route: 048
  2. CYMBALTA [Concomitant]
  3. METFORMIN HCL [Concomitant]
  4. FENOFIBRATE [Concomitant]
  5. CRESTOR [Suspect]
     Route: 048
  6. LISINOPRIL [Concomitant]
  7. NO MATCH [Concomitant]

REACTIONS (6)
  - BLOOD CHOLESTEROL INCREASED [None]
  - PHARYNGITIS [None]
  - GASTROOESOPHAGEAL REFLUX DISEASE [None]
  - NAUSEA [None]
  - DRUG INEFFECTIVE [None]
  - EAR INFECTION [None]
